FAERS Safety Report 14663439 (Version 7)
Quarter: 2019Q3

REPORT INFORMATION
  Report Type: Spontaneous
  Country: US (occurrence: US)
  Receive Date: 20180321
  Receipt Date: 20190708
  Transmission Date: 20191004
  Serious: No
  Sender: FDA-Public Use
  Company Number: US-PFIZER INC-2018114174

PATIENT
  Age: 46 Year
  Sex: Female

DRUGS (3)
  1. GENOTROPIN [Suspect]
     Active Substance: SOMATROPIN
     Dosage: 1.1 MG, SINGLE (ONCE)
     Route: 058
  2. GENOTROPIN [Suspect]
     Active Substance: SOMATROPIN
     Indication: HYPOPITUITARISM
     Dosage: 1.2 MG, DAILY
     Route: 058
     Dates: start: 20140306
  3. GENOTROPIN [Suspect]
     Active Substance: SOMATROPIN
     Dosage: 1.0 MG, DAILY
     Route: 058

REACTIONS (4)
  - Malaise [Unknown]
  - Full blood count increased [Unknown]
  - Vertigo [Unknown]
  - Fatigue [Unknown]

NARRATIVE: CASE EVENT DATE: 2018
